FAERS Safety Report 4522169-0 (Version None)
Quarter: 2004Q4

REPORT INFORMATION
  Report Type: 
  Country: None (occurrence: None)
  Receive Date: 20041209
  Receipt Date: 20041203
  Transmission Date: 20050328
  Serious: Yes (Other)
  Sender: FDA-Public Use
  Company Number: US-ROCHE-388306

PATIENT
  Age: 91 Year
  Sex: Female

DRUGS (2)
  1. TICLID [Suspect]
     Indication: STENT PLACEMENT
     Route: 065
  2. IMDUR [Suspect]
     Indication: DRUG USE FOR UNKNOWN INDICATION
     Dosage: DRUG USE DURATION STATED AS YEARS.
     Route: 048

REACTIONS (3)
  - CHEST PAIN [None]
  - DIARRHOEA [None]
  - STOOL ANALYSIS ABNORMAL [None]
